FAERS Safety Report 4881233-7 (Version None)
Quarter: 2005Q4

REPORT INFORMATION
  Report Type: 
  Country: None (occurrence: None)
  Receive Date: 20051212
  Receipt Date: 20051012
  Transmission Date: 20060501
  Serious: Yes (Hospitalization)
  Sender: FDA-Public Use
  Company Number: 2005-00803

PATIENT
  Age: 48 Year
  Sex: Male
  Weight: 59 kg

DRUGS (5)
  1. VELCADE [Suspect]
     Indication: MULTIPLE MYELOMA
     Dosage: 1.30 MG/M2
     Dates: start: 20050322, end: 20050325
  2. MS CONTIN [Concomitant]
  3. MORPHINE SULFATE [Concomitant]
  4. NORVASC (AMLODIINE BESILATE) [Concomitant]
  5. ZOMETA [Concomitant]

REACTIONS (8)
  - DRUG HYPERSENSITIVITY [None]
  - DYSPNOEA [None]
  - FATIGUE [None]
  - HYPOXIA [None]
  - PNEUMONITIS [None]
  - PRODUCTIVE COUGH [None]
  - PULMONARY OEDEMA [None]
  - PYREXIA [None]
